FAERS Safety Report 4615722-7 (Version None)
Quarter: 2005Q2

REPORT INFORMATION
  Report Type: 
  Country: None (occurrence: None)
  Receive Date: 20050310
  Receipt Date: 20050205
  Transmission Date: 20051028
  Serious: No
  Sender: FDA-Public Use
  Company Number: A03200500439

PATIENT
  Sex: Male

DRUGS (1)
  1. ELOXATIN [Suspect]

REACTIONS (2)
  - BACK PAIN [None]
  - CHEST DISCOMFORT [None]
